FAERS Safety Report 8612662-3 (Version None)
Quarter: 2012Q3

REPORT INFORMATION
  Report Type: 
  Country: None (occurrence: None)
  Receive Date: 20120822
  Receipt Date: 20110922
  Transmission Date: 20120928
  Serious: No
  Sender: FDA-Public Use
  Company Number: US-ASTRAZENECA-2011SE57343

PATIENT
  Age: 57 Year
  Sex: Female

DRUGS (4)
  1. SYMBICORT [Suspect]
     Route: 055
  2. RHINOCORT [Suspect]
     Route: 045
  3. NEXIUM [Suspect]
     Route: 048
  4. ZOMIG [Suspect]
     Route: 048

REACTIONS (2)
  - VOMITING [None]
  - MIGRAINE [None]
